FAERS Safety Report 7297823-0 (Version None)
Quarter: 2011Q1

REPORT INFORMATION
  Report Type: 
  Country: None (occurrence: None)
  Receive Date: 20110217
  Receipt Date: 20110210
  Transmission Date: 20110831
  Serious: Yes (Other)
  Sender: FDA-Public Use
  Company Number: IT-CELGENEUS-083-C5013-11021434

PATIENT
  Sex: Male
  Weight: 89 kg

DRUGS (4)
  1. PREDNISONE [Suspect]
     Indication: MULTIPLE MYELOMA
     Route: 065
     Dates: start: 20070621, end: 20080330
  2. CC-5013 [Suspect]
     Route: 048
     Dates: end: 20100923
  3. CC-5013 [Suspect]
     Indication: MULTIPLE MYELOMA
     Route: 048
     Dates: start: 20070621
  4. MELPHALAN [Suspect]
     Indication: MULTIPLE MYELOMA
     Route: 065
     Dates: start: 20070621, end: 20080330

REACTIONS (1)
  - RECTAL CANCER [None]
